FAERS Safety Report 5484717-6 (Version None)
Quarter: 2007Q4

REPORT INFORMATION
  Report Type: 
  Country: None (occurrence: None)
  Receive Date: 20071012
  Receipt Date: 20071001
  Transmission Date: 20080405
  Serious: Yes (Hospitalization, Other)
  Sender: FDA-Public Use
  Company Number: US-PFIZER INC-2007083172

PATIENT
  Sex: Female
  Weight: 90.9 kg

DRUGS (4)
  1. CHANTIX [Suspect]
     Indication: SMOKING CESSATION THERAPY
     Dates: start: 20070701, end: 20070904
  2. VERAPAMIL [Concomitant]
  3. VALSARTAN [Concomitant]
  4. HYDROCHLOROTHIAZIDE [Concomitant]

REACTIONS (7)
  - BLINDNESS [None]
  - CEREBROVASCULAR ACCIDENT [None]
  - MEMORY IMPAIRMENT [None]
  - MIGRAINE [None]
  - PLATELET COUNT INCREASED [None]
  - SCOTOMA [None]
  - TRANSIENT ISCHAEMIC ATTACK [None]
